FAERS Safety Report 16031435 (Version 1)
Quarter: 2019Q1

REPORT INFORMATION
  Report Type: Spontaneous
  Country: MX (occurrence: MX)
  Receive Date: 20190304
  Receipt Date: 20190304
  Transmission Date: 20190418
  Serious: Yes (Death)
  Sender: FDA-Public Use
  Company Number: MX-PURDUE PHARMA-GBR-2019-0064554

PATIENT
  Sex: Female

DRUGS (1)
  1. SOLORO7 [Suspect]
     Active Substance: BUPRENORPHINE
     Indication: ARTHRALGIA
     Dosage: UNK
     Route: 062

REACTIONS (2)
  - Adverse event [Unknown]
  - Death [Fatal]
